FAERS Safety Report 23754396 (Version 1)
Quarter: 2024Q2

REPORT INFORMATION
  Report Type: Spontaneous
  Country: NO (occurrence: NO)
  Receive Date: 20240418
  Receipt Date: 20240418
  Transmission Date: 20240716
  Serious: Yes (Hospitalization, Disabling)
  Sender: FDA-Public Use
  Company Number: None

PATIENT
  Age: 79 Year
  Sex: Male

DRUGS (6)
  1. ASPIRIN [Concomitant]
     Active Substance: ASPIRIN
     Indication: Cerebral infarction
     Dosage: 75MGX1 CONTINUED USE OF MEDICINAL PRODUCT
     Dates: start: 20211207
  2. EZETIMIBE [Concomitant]
     Active Substance: EZETIMIBE
     Indication: Cerebral infarction
     Dosage: 10MGX1 (CONTINUED USE OF MEDICINAL PRODUCT)
     Dates: start: 20210424
  3. METFORMIN ORIFARM [Concomitant]
     Indication: Type 2 diabetes mellitus
     Dosage: 500MGX1 CONTINUED USE OF MEDICINAL PRODUCT
     Dates: start: 20230920
  4. LIPITOR [Concomitant]
     Active Substance: ATORVASTATIN CALCIUM
     Indication: Cerebral infarction
     Dosage: 40MGX1 CONTINUED USE OF MEDICINAL PRODUCT
     Dates: start: 20211106
  5. OZEMPIC [Suspect]
     Active Substance: SEMAGLUTIDE
     Indication: Type 2 diabetes mellitus
     Dosage: 1 MG, QW( CONTINUED USE OF MEDICINAL PRODUCT)
     Route: 058
     Dates: start: 20230920
  6. GABAPENTIN [Concomitant]
     Active Substance: GABAPENTIN
     Indication: Back pain
     Dosage: 300MGX3
     Dates: start: 20240110, end: 20240301

REACTIONS (2)
  - Femoral neck fracture [Recovered/Resolved with Sequelae]
  - Fall [Recovered/Resolved with Sequelae]

NARRATIVE: CASE EVENT DATE: 20240209
